FAERS Safety Report 8271129-5 (Version None)
Quarter: 2012Q2

REPORT INFORMATION
  Report Type: 
  Country: None (occurrence: None)
  Receive Date: 20120410
  Receipt Date: 20120404
  Transmission Date: 20120825
  Serious: Yes (Hospitalization)
  Sender: FDA-Public Use
  Company Number: SE-PFIZER INC-2012084674

PATIENT
  Age: 73 Year
  Sex: Male

DRUGS (9)
  1. HERACILLIN [Suspect]
     Indication: INFECTION
     Dosage: 4500 MG/DAY
     Route: 048
     Dates: start: 20120215, end: 20120221
  2. SIMVASTATIN [Concomitant]
     Dosage: UNK
  3. ASPIRIN [Concomitant]
     Dosage: UNK
  4. CLINDAMYCIN HCL [Suspect]
     Indication: INFECTION
     Dosage: 900 MG/DAY
     Route: 048
     Dates: start: 20120203, end: 20120213
  5. ENALAPRIL [Concomitant]
     Dosage: UNK
  6. METOPROLOL [Concomitant]
     Dosage: UNK
  7. AMLODIPINE [Concomitant]
     Dosage: UNK
  8. ALLOPURINOL [Concomitant]
     Dosage: UNK
  9. PROPAVAN [Concomitant]
     Dosage: UNK

REACTIONS (2)
  - TONGUE OEDEMA [None]
  - VASCULITIS [None]
